FAERS Safety Report 5856625-X (Version None)
Quarter: 2008Q3

REPORT INFORMATION
  Report Type: 
  Country: None (occurrence: None)
  Receive Date: 20080822
  Receipt Date: 20080822
  Transmission Date: 20090109
  Serious: Yes (Hospitalization)
  Sender: FDA-Public Use
  Company Number: None

PATIENT
  Age: 65 Year
  Sex: Female
  Weight: 85.63 kg

DRUGS (2)
  1. GEMIFLOXACIN 320 MG [Suspect]
     Indication: ERYTHEMA
     Dosage: 320 MG DAILY PO
     Route: 048
     Dates: start: 20080816, end: 20080817
  2. GEMIFLOXACIN 320 MG [Suspect]
     Indication: SKIN ULCER
     Dosage: 320 MG DAILY PO
     Route: 048
     Dates: start: 20080816, end: 20080817

REACTIONS (2)
  - BLOOD GLUCOSE DECREASED [None]
  - UNRESPONSIVE TO STIMULI [None]
